FAERS Safety Report 5721276-4 (Version None)
Quarter: 2008Q2

REPORT INFORMATION
  Report Type: 
  Country: None (occurrence: None)
  Receive Date: 20080429
  Receipt Date: 20080417
  Transmission Date: 20081010
  Serious: Yes (Hospitalization)
  Sender: FDA-Public Use
  Company Number: US-JNJFOC-20080301891

PATIENT
  Sex: Female
  Weight: 62.14 kg

DRUGS (30)
  1. FENTANYL TRANSDERMAL SYSTEM [Suspect]
     Route: 062
  2. FENTANYL TRANSDERMAL SYSTEM [Suspect]
     Route: 062
  3. FENTANYL TRANSDERMAL SYSTEM [Suspect]
     Indication: LUNG NEOPLASM MALIGNANT
     Route: 062
  4. DURAGESIC-100 [Suspect]
     Indication: DRUG USE FOR UNKNOWN INDICATION
     Route: 062
  5. ANTINEOPLASTIC [Concomitant]
     Indication: LUNG NEOPLASM MALIGNANT
  6. MARIJUANA [Concomitant]
     Route: 048
  7. COUMADIN [Concomitant]
     Indication: THROMBOSIS
     Route: 048
  8. ANTIHYPERTENSIVE [Concomitant]
     Indication: HYPERTENSION
     Route: 048
  9. PHENERGAN [Concomitant]
     Indication: NAUSEA
     Route: 048
  10. OXYCODONE HCL [Concomitant]
     Indication: PAIN
     Dosage: EVERY 6-8 HOURS WHEN NEEDED
     Route: 048
  11. REQUIP [Concomitant]
     Route: 048
  12. REQUIP [Concomitant]
     Route: 048
  13. PLAVIX [Concomitant]
     Route: 048
  14. PLETAL [Concomitant]
     Route: 048
  15. PRILOSEC [Concomitant]
     Route: 048
  16. NEXIUM [Concomitant]
     Route: 048
  17. HYDROXYZINE HCL [Concomitant]
     Route: 048
  18. PENTOXYFILLINE [Concomitant]
     Route: 048
  19. MS CONTIN [Concomitant]
     Route: 048
  20. MIRALAX [Concomitant]
     Route: 065
  21. OSCAL [Concomitant]
     Route: 048
  22. XANAX [Concomitant]
     Route: 048
  23. ZOCOR [Concomitant]
     Route: 048
  24. ASPIRIN [Concomitant]
     Route: 048
  25. EXFORGE [Concomitant]
     Route: 048
  26. PERCOCET [Concomitant]
     Dosage: AS NEEDED
     Route: 048
  27. PROMETHAZINE [Concomitant]
  28. DEXAMETHASONE [Concomitant]
     Route: 048
  29. ZOFRAN [Concomitant]
     Route: 048
  30. REGLAN [Concomitant]
     Route: 048

REACTIONS (6)
  - ANOREXIA [None]
  - CHOLELITHIASIS [None]
  - GAIT DISTURBANCE [None]
  - INCOHERENT [None]
  - NAUSEA [None]
  - VOMITING [None]
